FAERS Safety Report 4631271-4 (Version None)
Quarter: 2005Q2

REPORT INFORMATION
  Report Type: 
  Country: None (occurrence: None)
  Receive Date: 20050406
  Receipt Date: 20050322
  Transmission Date: 20051028
  Serious: Yes (Other)
  Sender: FDA-Public Use
  Company Number: USA050289588

PATIENT
  Age: 16 Year
  Sex: Male

DRUGS (1)
  1. STRATTERA [Suspect]
     Indication: ATTENTION DEFICIT/HYPERACTIVITY DISORDER
     Dosage: 25 MG DAY
     Dates: start: 20050131, end: 20050207

REACTIONS (4)
  - BLINDNESS TRANSIENT [None]
  - HYPOGLYCAEMIA [None]
  - OPHTHALMOPLEGIC MIGRAINE [None]
  - VISION BLURRED [None]
